FAERS Safety Report 8185863-9 (Version None)
Quarter: 2012Q1

REPORT INFORMATION
  Report Type: 
  Country: None (occurrence: None)
  Receive Date: 20120305
  Receipt Date: 20120224
  Transmission Date: 20120608
  Serious: Yes (Life-Threatening, Other)
  Sender: FDA-Public Use
  Company Number: US-ASTRAZENECA-2012SE13574

PATIENT
  Age: 65 Year
  Sex: Female

DRUGS (1)
  1. NEXIUM [Suspect]
     Route: 048

REACTIONS (13)
  - ABDOMINAL PAIN [None]
  - DYSPNOEA [None]
  - TOOTH FRACTURE [None]
  - CONVULSION [None]
  - SUICIDE ATTEMPT [None]
  - CELLULITIS [None]
  - LOSS OF CONSCIOUSNESS [None]
  - THERMAL BURN [None]
  - CHEST PAIN [None]
  - DRUG DOSE OMISSION [None]
  - CARDIAC DISORDER [None]
  - ABDOMINAL PAIN UPPER [None]
  - CALCINOSIS [None]
